FAERS Safety Report 7714084-6 (Version None)
Quarter: 2011Q3

REPORT INFORMATION
  Report Type: 
  Country: None (occurrence: None)
  Receive Date: 20110827
  Receipt Date: 20110824
  Transmission Date: 20111222
  Serious: No
  Sender: FDA-Public Use
  Company Number: US-B.I. PHARMACEUTICALS,INC./RIDGEFIELD-2011-BP-20629BP

PATIENT
  Sex: Female

DRUGS (2)
  1. ALBUTEROL INHALER [Concomitant]
     Indication: RESPIRATORY DISORDER
     Route: 055
  2. ATROVENT HFA [Suspect]
     Indication: COUGH
     Dosage: 136 MCG
     Route: 055
     Dates: start: 20110807

REACTIONS (3)
  - RETCHING [None]
  - NAUSEA [None]
  - CHOKING SENSATION [None]
